FAERS Safety Report 17560037 (Version 2)
Quarter: 2020Q1

REPORT INFORMATION
  Report Type: Spontaneous
  Country: CN (occurrence: CN)
  Receive Date: 20200319
  Receipt Date: 20200323
  Transmission Date: 20200409
  Serious: Yes (Hospitalization)
  Sender: FDA-Public Use
  Company Number: CN-ELI_LILLY_AND_COMPANY-CN202003006375

PATIENT
  Age: 69 Year
  Sex: Male
  Weight: 80 kg

DRUGS (4)
  1. HUMULIN 70/30 [Suspect]
     Active Substance: INSULIN HUMAN
     Dosage: 18 INTERNATIONAL UNIT, EACH EVENING
     Route: 058
     Dates: end: 201901
  2. HUMULIN 70/30 [Suspect]
     Active Substance: INSULIN HUMAN
     Dosage: 18 INTERNATIONAL UNIT, EACH EVENING
     Route: 058
     Dates: start: 20200309
  3. HUMULIN 70/30 [Suspect]
     Active Substance: INSULIN HUMAN
     Dosage: 22 INTERNATIONAL UNIT, EACH MORNING
     Route: 058
     Dates: start: 20200309
  4. HUMULIN 70/30 [Suspect]
     Active Substance: INSULIN HUMAN
     Indication: TYPE 2 DIABETES MELLITUS
     Dosage: 22 INTERNATIONAL UNIT, EACH MORNING
     Route: 058
     Dates: end: 201901

REACTIONS (2)
  - Hypertension [Unknown]
  - Weight decreased [Unknown]

NARRATIVE: CASE EVENT DATE: 2016
